FAERS Safety Report 14568407 (Version 2)
Quarter: 2018Q1

REPORT INFORMATION
  Report Type: Spontaneous
  Country: AU (occurrence: AU)
  Receive Date: 20180223
  Receipt Date: 20180314
  Transmission Date: 20180509
  Serious: Yes (Other)
  Sender: FDA-Public Use
  Company Number: AU-SEATTLE GENETICS-2018SGN00345

PATIENT

DRUGS (1)
  1. ADCETRIS [Suspect]
     Active Substance: BRENTUXIMAB VEDOTIN
     Indication: ENTEROPATHY-ASSOCIATED T-CELL LYMPHOMA
     Dosage: UNK
     Route: 065

REACTIONS (1)
  - Enteropathy-associated T-cell lymphoma [Unknown]
